FAERS Safety Report 12781573 (Version 2)
Quarter: 2016Q3

REPORT INFORMATION
  Report Type: Spontaneous
  Country: US (occurrence: US)
  Receive Date: 20160926
  Receipt Date: 20160930
  Transmission Date: 20161109
  Serious: Yes (Hospitalization)
  Sender: FDA-Public Use
  Company Number: US-ALLERGAN-1668290US

PATIENT
  Age: 54 Year
  Sex: Female

DRUGS (2)
  1. DALVANCE [Suspect]
     Active Substance: DALBAVANCIN
     Dosage: 1500 MG, SINGLE
     Route: 042
     Dates: start: 20160808, end: 20160808
  2. DALVANCE [Suspect]
     Active Substance: DALBAVANCIN
     Indication: OSTEOMYELITIS
     Dosage: 1500 MG, SINGLE
     Route: 042
     Dates: start: 20160725, end: 20160725

REACTIONS (3)
  - Off label use [Unknown]
  - Infection reactivation [Unknown]
  - Tendon transfer [Unknown]
